FAERS Safety Report 20373569 (Version 1)
Quarter: 2022Q1

REPORT INFORMATION
  Report Type: Spontaneous
  Country: US (occurrence: US)
  Receive Date: 20220125
  Receipt Date: 20220125
  Transmission Date: 20220423
  Serious: No
  Sender: FDA-Public Use
  Company Number: US-ALLERGAN-2047364US

PATIENT
  Sex: Male

DRUGS (6)
  1. BYSTOLIC [Interacting]
     Active Substance: NEBIVOLOL HYDROCHLORIDE
     Indication: Hypertension
     Dosage: 5 MG, QD
     Route: 048
  2. HERBALS\TRIBULUS TERRESTRIS [Interacting]
     Active Substance: HERBALS\TRIBULUS TERRESTRIS
     Indication: Product used for unknown indication
     Dosage: 5 MG, QD
  3. VITAMIN D [Concomitant]
     Active Substance: VITAMIN D NOS
  4. VITAMIN B COMPLEX [Concomitant]
     Active Substance: CYANOCOBALAMIN\DEXPANTHENOL\NIACINAMIDE\PYRIDOXINE HYDROCHLORIDE\RIBOFLAVIN 5^-PHOSPHATE SODIUM\THIA
  5. DIETARY SUPPLEMENT\GRAPE SEED EXTRACT [Concomitant]
     Active Substance: DIETARY SUPPLEMENT\GRAPE SEED EXTRACT
  6. CITRULLINE [Suspect]
     Active Substance: CITRULLINE

REACTIONS (2)
  - Insomnia [Not Recovered/Not Resolved]
  - Drug interaction [Unknown]
